FAERS Safety Report 5080073-6 (Version None)
Quarter: 2006Q3

REPORT INFORMATION
  Report Type: 
  Country: None (occurrence: None)
  Receive Date: 20060810
  Receipt Date: 20060729
  Transmission Date: 20061208
  Serious: Yes (Hospitalization, Other)
  Sender: FDA-Public Use
  Company Number: 2006086058

PATIENT
  Sex: Male

DRUGS (2)
  1. DIABINESE [Suspect]
     Indication: DRUG USE FOR UNKNOWN INDICATION
  2. ASPIRIN [Concomitant]

REACTIONS (9)
  - FEELING ABNORMAL [None]
  - HIP ARTHROPLASTY [None]
  - INCORRECT DOSE ADMINISTERED [None]
  - INJURY [None]
  - LOSS OF CONSCIOUSNESS [None]
  - NERVE INJURY [None]
  - PAIN [None]
  - SPINAL DISORDER [None]
  - UNEQUAL LIMB LENGTH [None]
